FAERS Safety Report 21206555 (Version 1)
Quarter: 2022Q3

REPORT INFORMATION
  Report Type: Report from Study
  Country: CH (occurrence: CH)
  Receive Date: 20220812
  Receipt Date: 20220812
  Transmission Date: 20221026
  Serious: Yes (Congenital Anomaly, Other)
  Sender: FDA-Public Use
  Company Number: CH-MYLANLABS-2022M1084425

PATIENT
  Sex: Female

DRUGS (4)
  1. TENOFOVIR DISOPROXIL [Suspect]
     Active Substance: TENOFOVIR DISOPROXIL
     Indication: Asymptomatic HIV infection
     Dosage: UNK
     Route: 064
  2. LAMIVUDINE [Suspect]
     Active Substance: LAMIVUDINE
     Indication: Asymptomatic HIV infection
     Dosage: UNK
     Route: 064
  3. RETROVIR [Suspect]
     Active Substance: ZIDOVUDINE
     Indication: Asymptomatic HIV infection
     Dosage: 2 MG/KG/HR, QD
     Route: 064
  4. LOPINAVIR\RITONAVIR [Suspect]
     Active Substance: LOPINAVIR\RITONAVIR
     Indication: Asymptomatic HIV infection
     Dosage: UNK
     Route: 064

REACTIONS (10)
  - Meningomyelocele [Unknown]
  - Arnold-Chiari malformation [Unknown]
  - Congenital hydrocephalus [Unknown]
  - Neonatal respiratory distress syndrome [Recovered/Resolved]
  - Necrotising enterocolitis neonatal [Recovered/Resolved]
  - Hydromyelia [Recovered/Resolved]
  - Macrocephaly [Recovered/Resolved]
  - Premature baby [Recovered/Resolved]
  - Hyperbilirubinaemia neonatal [Recovered/Resolved]
  - Foetal exposure during pregnancy [Recovered/Resolved]
